FAERS Safety Report 9013408 (Version 2)
Quarter: 2013Q2

REPORT INFORMATION
  Report Type: Report from Study
  Country: JP (occurrence: JP)
  Receive Date: 20130114
  Receipt Date: 20130403
  Transmission Date: 20140414
  Serious: Yes (Death)
  Sender: FDA-Public Use
  Company Number: JP-PFIZER INC-2013013409

PATIENT
  Age: 92 Year
  Sex: Female
  Weight: 62.3 kg

DRUGS (22)
  1. XALKORI [Suspect]
     Indication: NON-SMALL CELL LUNG CANCER
     Dosage: 200 MG, 2X/DAY
     Route: 048
     Dates: start: 20121004, end: 20121011
  2. MICARDIS [Concomitant]
     Dosage: 80 MG, 1X/DAY
     Route: 048
     Dates: end: 20121013
  3. SAVETENS [Concomitant]
     Dosage: 25 MG, 1X/DAY
     Route: 048
     Dates: end: 20121013
  4. ATELEC [Concomitant]
     Dosage: 10 MG, 1X/DAY
     Route: 048
  5. MAGMITT [Concomitant]
     Dosage: 500 MG, 1X/DAY
     Route: 048
  6. VITAMEDIN CAPSULE [Concomitant]
     Dosage: 1 MG, 3X/DAY
     Route: 048
     Dates: end: 20121013
  7. MEDICON [Concomitant]
     Dosage: 15 MG, AS NEEDED
     Route: 048
     Dates: end: 20121006
  8. LOXONIN [Concomitant]
     Dosage: 60 MG, AS NEEDED
     Route: 048
  9. MYSLEE [Concomitant]
     Dosage: 5 MG, AS NEEDED
     Route: 048
     Dates: start: 2012
  10. ADONA [Concomitant]
     Dosage: 10 MG, 3X/DAY
     Route: 048
     Dates: end: 20121012
  11. TRANSAMIN [Concomitant]
     Dosage: 250 MG, 2X/DAY
     Dates: end: 20121012
  12. PRIMPERAN [Concomitant]
     Dosage: 5 MG, 3X/DAY
     Route: 048
     Dates: start: 20121004, end: 20121012
  13. RINDERON [Concomitant]
     Dosage: 0.5 MG, 2X/DAY
     Route: 048
     Dates: start: 20121004
  14. NEXIUM [Concomitant]
     Dosage: 20 MG, 1X/DAY
     Route: 048
     Dates: start: 20121004
  15. BIOFERMIN [Concomitant]
     Dosage: 1 G, 3X/DAY
     Route: 048
     Dates: start: 20121004, end: 20121012
  16. DOMPERIDONE [Concomitant]
     Dosage: 10 MG, AS NEEDED
     Route: 048
     Dates: start: 20121006, end: 20121006
  17. BUSCOPAN [Concomitant]
     Dosage: 10 MG, AS NEEDED
     Route: 048
     Dates: start: 20121007, end: 20121012
  18. BUSCOPAN [Concomitant]
     Dosage: 20 MG, AS NEEDED
     Route: 042
     Dates: start: 20121011
  19. LOPEMIN [Concomitant]
     Dosage: 1 MG, 2X/DAY
     Route: 048
     Dates: start: 20121007, end: 20121010
  20. OXYCONTIN [Concomitant]
     Dosage: 10 MG, 2X/DAY
     Route: 048
     Dates: start: 20121011
  21. GRANISETRON [Concomitant]
     Dosage: 3 MG, UNK
     Dates: start: 20121004, end: 20121006
  22. DEXART [Concomitant]
     Dosage: 6.6 MG, UNK
     Dates: start: 20121004, end: 20121006

REACTIONS (1)
  - Death [Fatal]
